FAERS Safety Report 5599830-2 (Version None)
Quarter: 2008Q1

REPORT INFORMATION
  Report Type: 
  Country: None (occurrence: None)
  Receive Date: 20080118
  Receipt Date: 20080118
  Transmission Date: 20080703
  Serious: No
  Sender: FDA-Public Use
  Company Number: None

PATIENT
  Age: 54 Year
  Sex: Female
  Weight: 65.7716 kg

DRUGS (2)
  1. BUPROPION SR 100 MG TABLETS ? [Suspect]
     Indication: DEPRESSION
     Dosage: 100 MG ONCE DAILY PO
     Route: 048
     Dates: start: 20051201, end: 20070412
  2. BUPROPION SR 100 MG TABLETS ? [Suspect]
     Indication: SEASONAL AFFECTIVE DISORDER
     Dosage: 100 MG ONCE DAILY PO
     Route: 048
     Dates: start: 20051201, end: 20070412

REACTIONS (1)
  - HEPATIC ENZYME INCREASED [None]
